FAERS Safety Report 10064053 (Version 1)
Quarter: 2014Q2

REPORT INFORMATION
  Report Type: Spontaneous
  Country: DE (occurrence: DE)
  Receive Date: 20140408
  Receipt Date: 20140408
  Transmission Date: 20141212
  Serious: Yes (Other)
  Sender: FDA-Public Use
  Company Number: DE-AMGEN-DEUSP2014024423

PATIENT
  Sex: Female

DRUGS (3)
  1. NEUPOGEN [Suspect]
     Indication: PRODUCT USED FOR UNKNOWN INDICATION
     Dosage: UNK, RECEIVED FOR THREE DAYS
     Route: 065
  2. CARBOPLATIN [Concomitant]
     Dosage: UNK UNK, WEEKLY
  3. PACLITAXEL [Concomitant]
     Dosage: UNK UNK, WEEKLY

REACTIONS (1)
  - Neutropenia [Unknown]
